FAERS Safety Report 22585575 (Version 2)
Quarter: 2023Q2

REPORT INFORMATION
  Report Type: Spontaneous
  Country: US (occurrence: US)
  Receive Date: 20230610
  Receipt Date: 20230622
  Transmission Date: 20230721
  Serious: No
  Sender: FDA-Public Use
  Company Number: US-AMGEN-USASP2023096899

PATIENT
  Age: 63 Year
  Sex: Male

DRUGS (3)
  1. TAVNEOS [Suspect]
     Active Substance: AVACOPAN
     Indication: Microscopic polyangiitis
     Dosage: 30 MILLIGRAM, BID (TAKE 3 CAPSULES (30 MG) BY MOUTH TWICE DAILY WITH FOOD)
     Route: 048
     Dates: start: 20230511
  2. TAVNEOS [Suspect]
     Active Substance: AVACOPAN
     Dosage: 30 MILLIGRAM, BID (TAKE 3 CAPSULES (30 MG) BY MOUTH TWICE DAILY WITH FOOD)
     Route: 048
  3. PREDNISONE [Concomitant]
     Active Substance: PREDNISONE
     Indication: Product used for unknown indication
     Dosage: UNK TO 20 MILLIGRAM
     Route: 065

REACTIONS (11)
  - Insomnia [Unknown]
  - Depression [Unknown]
  - Abdominal distension [Unknown]
  - Weight increased [Unknown]
  - Weight decreased [Unknown]
  - Joint swelling [Unknown]
  - Muscular weakness [Unknown]
  - Fatigue [Unknown]
  - Hepatic enzyme increased [Unknown]
  - Blood test abnormal [Unknown]
  - Paraesthesia [Unknown]

NARRATIVE: CASE EVENT DATE: 20230101
